FAERS Safety Report 20978155 (Version 1)
Quarter: 2022Q2

REPORT INFORMATION
  Report Type: Spontaneous
  Country: CN (occurrence: CN)
  Receive Date: 20220618
  Receipt Date: 20220618
  Transmission Date: 20220721
  Serious: Yes (Other)
  Sender: FDA-Public Use
  Company Number: CN-MLMSERVICE-20220608-3596953-1

PATIENT
  Age: 78 Year
  Sex: Male

DRUGS (4)
  1. CISPLATIN [Suspect]
     Active Substance: CISPLATIN
     Indication: Metastatic neoplasm
     Dosage: CUMULATIVE DOSE: 2 CYCLICAL, 25 MG/M2 DAY1-3 Q3W
     Dates: start: 20210518, end: 20210628
  2. CAPECITABINE [Concomitant]
     Active Substance: CAPECITABINE
     Indication: Metastatic neoplasm
     Dosage: 1250 MG/M2 BID DAY1-14 Q3W
     Dates: start: 20210518
  3. PEMBROLIZUMAB [Concomitant]
     Active Substance: PEMBROLIZUMAB
     Indication: Metastatic neoplasm
     Dosage: 200 MG DAY1 Q3W
     Dates: start: 20210518
  4. TRASTUZUMAB [Concomitant]
     Active Substance: TRASTUZUMAB
     Indication: Metastatic neoplasm
     Dates: start: 2021

REACTIONS (1)
  - Gastrointestinal toxicity [Unknown]

NARRATIVE: CASE EVENT DATE: 20210101
